FAERS Safety Report 4430929-X (Version None)
Quarter: 2004Q3

REPORT INFORMATION
  Report Type: 
  Country: None (occurrence: None)
  Receive Date: 20040823
  Receipt Date: 20040813
  Transmission Date: 20050211
  Serious: Yes (Hospitalization)
  Sender: FDA-Public Use
  Company Number: FR-MERCK-0408FRA00024

PATIENT
  Age: 65 Year
  Sex: Male

DRUGS (8)
  1. CLOPIDOGREL BISULFATE [Concomitant]
     Route: 048
  2. DILTIAZEM HYDROCHLORIDE [Concomitant]
     Route: 048
  3. TRUSOPT [Suspect]
     Route: 047
     Dates: start: 20040315, end: 20040525
  4. FLUOROMETHOLONE [Concomitant]
     Route: 047
     Dates: start: 20040315
  5. FLUTICASONE PROPIONATE AND SALMETEROL XINAFOATE [Concomitant]
     Route: 065
  6. KETOROLAC TROMETHAMINE [Concomitant]
     Route: 047
     Dates: start: 20040315
  7. SINGULAIR [Concomitant]
     Route: 048
  8. PENTOXIFYLLINE [Concomitant]
     Route: 048

REACTIONS (2)
  - RASH ERYTHEMATOUS [None]
  - RASH PAPULOSQUAMOUS [None]
